FAERS Safety Report 8436805 (Version 13)
Quarter: 2015Q2

REPORT INFORMATION
  Report Type: Report from Study
  Country: PL (occurrence: PL)
  Receive Date: 20120302
  Receipt Date: 20150506
  Transmission Date: 20150821
  Serious: Yes (Hospitalization)
  Sender: FDA-Public Use
  Company Number: PL-ROCHE-1042675

PATIENT
  Age: 54 Year
  Sex: Female
  Weight: 65 kg

DRUGS (9)
  1. VEMURAFENIB [Suspect]
     Active Substance: VEMURAFENIB
     Dosage: DATE OF LAST DOSE OF VEMURAFENIB 720 MG PRIOR TO ADVERSE EVENT: 13/FEB/2012
     Route: 048
     Dates: start: 20120119, end: 20120213
  2. VEMURAFENIB [Suspect]
     Active Substance: VEMURAFENIB
     Indication: MALIGNANT MELANOMA
     Dosage: DATE OF LAST DOSE PRIOR TO SAE: 18/JAN/2012
     Route: 048
     Dates: start: 20111121
  3. FUROSEMIDE. [Concomitant]
     Active Substance: FUROSEMIDE
     Route: 065
     Dates: start: 20111224
  4. NYSTATYNA [Concomitant]
     Indication: ORAL CANDIDIASIS
     Route: 065
     Dates: start: 20120213, end: 20120220
  5. DEPAKINE CHRONO [Concomitant]
     Active Substance: VALPROATE SODIUM
     Route: 065
     Dates: start: 20110805
  6. PRAZOL (POLAND) [Concomitant]
     Active Substance: OMEPRAZOLE
     Route: 065
     Dates: start: 20110812
  7. VEMURAFENIB [Suspect]
     Active Substance: VEMURAFENIB
     Route: 048
     Dates: start: 20120228
  8. FLUCONAZOLE. [Concomitant]
     Active Substance: FLUCONAZOLE
     Indication: ORAL CANDIDIASIS
     Route: 065
     Dates: start: 20120213, end: 20120220
  9. DEXAMETHASONE. [Concomitant]
     Active Substance: DEXAMETHASONE
     Route: 065
     Dates: start: 20111224, end: 20120410

REACTIONS (1)
  - Neutropenia [Recovered/Resolved]

NARRATIVE: CASE EVENT DATE: 20120213
